FAERS Safety Report 9181658 (Version 3)
Quarter: 2013Q3

REPORT INFORMATION
  Report Type: Spontaneous
  Country: BR (occurrence: BR)
  Receive Date: 20130322
  Receipt Date: 20130905
  Transmission Date: 20140515
  Serious: Yes (Hospitalization, Other)
  Sender: FDA-Public Use
  Company Number: BR-ABBOTT-13P-020-1065795-00

PATIENT
  Sex: Female
  Weight: 68 kg

DRUGS (4)
  1. HUMIRA [Suspect]
     Indication: ANKYLOSING SPONDYLITIS
     Route: 058
  2. HUMIRA [Suspect]
     Route: 030
  3. NIMESULIDE [Concomitant]
     Indication: ANKYLOSING SPONDYLITIS
     Dosage: 100MG / 100MG
     Route: 048
     Dates: start: 201009
  4. NIMESULIDE [Concomitant]
     Route: 048
     Dates: start: 201102

REACTIONS (5)
  - Cholelithiasis [Unknown]
  - Movement disorder [Unknown]
  - Drug ineffective [Unknown]
  - Injection site pain [Not Recovered/Not Resolved]
  - Wrong technique in drug usage process [Unknown]
